FAERS Safety Report 8798117 (Version 3)
Quarter: 2013Q2

REPORT INFORMATION
  Report Type: Spontaneous
  Country: GB (occurrence: GB)
  Receive Date: 20120920
  Receipt Date: 20130524
  Transmission Date: 20140414
  Serious: Yes (Hospitalization)
  Sender: FDA-Public Use
  Company Number: GB-009507513-1209GBR007503

PATIENT
  Age: 55 Year
  Sex: Male

DRUGS (2)
  1. ZOCOR [Suspect]
     Indication: HYPERCHOLESTEROLAEMIA
     Dosage: 40 MG, QD
     Route: 048
  2. PANTOPRAZOLE [Concomitant]

REACTIONS (7)
  - Speech disorder [Unknown]
  - Dizziness [Unknown]
  - Slow speech [Unknown]
  - Nausea [Unknown]
  - Product packaging issue [Unknown]
  - Product quality issue [Unknown]
  - Medication error [Unknown]
